FAERS Safety Report 23153928 (Version 1)
Quarter: 2023Q4

REPORT INFORMATION
  Report Type: Spontaneous
  Country: JP (occurrence: JP)
  Receive Date: 20231107
  Receipt Date: 20231107
  Transmission Date: 20240109
  Serious: Yes (Other)
  Sender: FDA-Public Use
  Company Number: JP-e5PHARMA-2023-JP-000410

PATIENT
  Age: 35 Day
  Sex: 0

DRUGS (1)
  1. DIAZOXIDE [Suspect]
     Active Substance: DIAZOXIDE
     Indication: Hyperinsulinaemic hypoglycaemia
     Dosage: 5 MG/KG/DAY
     Route: 048

REACTIONS (2)
  - Generalised oedema [Unknown]
  - Left ventricular enlargement [Unknown]
